FAERS Safety Report 21392368 (Version 2)
Quarter: 2022Q4

REPORT INFORMATION
  Report Type: Report from Study
  Country: US (occurrence: US)
  Receive Date: 20220929
  Receipt Date: 20221019
  Transmission Date: 20230113
  Serious: Yes (Other)
  Sender: FDA-Public Use
  Company Number: US-TEVA-2022-US-2076297

PATIENT
  Age: 78 Year
  Sex: Female

DRUGS (3)
  1. PREDNISONE [Suspect]
     Active Substance: PREDNISONE
     Indication: Eosinophilia
     Route: 065
     Dates: start: 20201207
  2. ASPIRIN [Suspect]
     Active Substance: ASPIRIN
     Indication: Immune tolerance induction
     Dosage: ADDITIONAL INFO: ACTION TAKEN: AFTER AERD ASPIRIN DESENSITISATION WAS PERFORMED AND AFTER HYPEREOSIN
     Route: 065
  3. ASPIRIN [Suspect]
     Active Substance: ASPIRIN
     Indication: Immune tolerance induction
     Dosage: 1300 MILLIGRAM DAILY;
     Route: 065
     Dates: start: 2020

REACTIONS (3)
  - NSAID exacerbated respiratory disease [Unknown]
  - Eosinophilia [Recovered/Resolved]
  - Rebound effect [Recovered/Resolved]

NARRATIVE: CASE EVENT DATE: 20201202
